FAERS Safety Report 13508863 (Version 1)
Quarter: 2017Q2

REPORT INFORMATION
  Report Type: Report from Study
  Country: US (occurrence: US)
  Receive Date: 20170503
  Receipt Date: 20170503
  Transmission Date: 20170830
  Serious: Yes (Other)
  Sender: FDA-Public Use
  Company Number: US-UCBSA-2017016420

PATIENT
  Age: 34 Year
  Sex: Female
  Weight: 68.1 kg

DRUGS (9)
  1. HYDROCODONE [Concomitant]
     Active Substance: HYDROCODONE
     Indication: PSORIATIC ARTHROPATHY
     Dosage: 30 MG, ONCE DAILY (QD)
     Route: 048
     Dates: start: 20130124, end: 20131018
  2. MONISTAT [Concomitant]
     Active Substance: MICONAZOLE NITRATE
     Indication: FUNGAL INFECTION
     Dosage: 1 DF, ONCE DAILY (QD)
     Route: 061
     Dates: start: 20130527, end: 20130909
  3. CIPROFLOXACIN W/ DEXAMETHASONE [Concomitant]
     Indication: SUPERFICIAL INJURY OF EYE
     Dosage: 9.6 DF, ONCE DAILY (QD)
     Route: 061
     Dates: start: 20130216, end: 20130223
  4. ERGOCALCIFEROL. [Concomitant]
     Active Substance: ERGOCALCIFEROL
     Indication: OSTEOPENIA
     Dosage: 1 DF, WEEKLY (QW)
     Route: 048
     Dates: start: 20130201, end: 20130419
  5. PENICILLIN [Concomitant]
     Active Substance: PENICILLIN
     Indication: PHARYNGITIS STREPTOCOCCAL
     Dosage: UNK
     Dates: start: 20130520
  6. CERTOLIZUMAB PEGOL RA [Suspect]
     Active Substance: CERTOLIZUMAB PEGOL
     Indication: PSORIATIC ARTHROPATHY
  7. AMOXICILLIN. [Concomitant]
     Active Substance: AMOXICILLIN
     Indication: URINARY TRACT INFECTION
     Dosage: 500 MG, ONCE DAILY (QD)
     Route: 048
     Dates: start: 20130401, end: 20130410
  8. CERTOLIZUMAB PEGOL RA [Suspect]
     Active Substance: CERTOLIZUMAB PEGOL
     Indication: PSORIASIS
     Dosage: 2 DF, MONTHLY (QM)
     Dates: start: 20130214, end: 20130910
  9. CIPROFLOXACIN. [Concomitant]
     Active Substance: CIPROFLOXACIN
     Indication: SUPERFICIAL INJURY OF EYE
     Dosage: UNK

REACTIONS (5)
  - Pharyngitis streptococcal [Recovered/Resolved]
  - Urinary tract infection [Unknown]
  - Superficial injury of eye [Unknown]
  - Exposure during pregnancy [Unknown]
  - Fungal infection [Unknown]

NARRATIVE: CASE EVENT DATE: 2013
